FAERS Safety Report 5410192-3 (Version None)
Quarter: 2007Q3

REPORT INFORMATION
  Report Type: 
  Country: None (occurrence: None)
  Receive Date: 20070713
  Receipt Date: 20070411
  Transmission Date: 20080115
  Serious: No
  Sender: FDA-Public Use
  Company Number: 2007SP001320

PATIENT
  Age: 52 Year
  Sex: Female
  Weight: 58.0604 kg

DRUGS (14)
  1. LUNESTA [Suspect]
     Indication: INSOMNIA
     Dosage: 3 MG;HS;ORAL
     Route: 048
     Dates: start: 20070316, end: 20070318
  2. ASCORBIC ACID [Concomitant]
  3. OMEGA 3 [Concomitant]
  4. VITAMIN CAP [Concomitant]
  5. COQ10 [Concomitant]
  6. CALCIUM [Concomitant]
  7. VITAMIN E [Concomitant]
  8. NASACORT [Concomitant]
  9. GINKGO BILOBA [Concomitant]
  10. NUVARING [Concomitant]
  11. SINGULAIR [Concomitant]
  12. IRON [Concomitant]
  13. LEXAPRO [Concomitant]
  14. PREVACID [Concomitant]

REACTIONS (1)
  - DYSGEUSIA [None]
